FAERS Safety Report 24916158 (Version 1)
Quarter: 2025Q1

REPORT INFORMATION
  Report Type: Spontaneous
  Country: ES (occurrence: ES)
  Receive Date: 20250203
  Receipt Date: 20250203
  Transmission Date: 20250409
  Serious: Yes (Hospitalization)
  Sender: TEVA
  Company Number: ES-ROCHE-10000137783

PATIENT
  Age: 47 Year
  Sex: Female
  Weight: 93 kg

DRUGS (12)
  1. EPIRUBICIN [Suspect]
     Active Substance: EPIRUBICIN
     Indication: HER2 positive breast cancer
     Dosage: START DATE: 28/JUN/2024
     Route: 042
     Dates: start: 20240628, end: 20240708
  2. OMEPRAZOL A [Concomitant]
     Indication: Product used for unknown indication
  3. VALSARTAN [Concomitant]
     Active Substance: VALSARTAN
     Indication: Product used for unknown indication
  4. BISOPROLOL [Concomitant]
     Active Substance: BISOPROLOL
     Indication: Product used for unknown indication
  5. CYCLOPHOSPHAMIDE [Suspect]
     Active Substance: CYCLOPHOSPHAMIDE
     Indication: HER2 positive breast cancer
     Dosage: START DATE: 28/JUN/2024
     Route: 042
     Dates: start: 20240628, end: 20240708
  6. PLACEBO [Suspect]
     Active Substance: PLACEBO
     Indication: HER2 positive breast cancer
     Route: 042
     Dates: start: 20130307, end: 20240205
  7. SACUBITRILO [Concomitant]
     Indication: Product used for unknown indication
  8. TRASTUZUMAB [Suspect]
     Active Substance: TRASTUZUMAB
     Indication: HER2 positive breast cancer
     Dosage: START DATE: 28/JUN/2024
     Route: 042
     Dates: start: 20240628, end: 20240708
  9. FUROSEMIDE [Concomitant]
     Active Substance: FUROSEMIDE
     Indication: Product used for unknown indication
  10. APIXABAN [Concomitant]
     Active Substance: APIXABAN
     Indication: Product used for unknown indication
     Dates: start: 20220322
  11. IRON [Concomitant]
     Active Substance: IRON
     Indication: Product used for unknown indication
  12. DAPAGLIFLOZIN [Concomitant]
     Active Substance: DAPAGLIFLOZIN
     Indication: Product used for unknown indication
     Dates: start: 20220315

REACTIONS (1)
  - Cardiac failure [Recovered/Resolved with Sequelae]

NARRATIVE: CASE EVENT DATE: 20240622
